FAERS Safety Report 12214409 (Version 1)
Quarter: 2016Q1

REPORT INFORMATION
  Report Type: Report from Study
  Country: IT (occurrence: IT)
  Receive Date: 20160328
  Receipt Date: 20160328
  Transmission Date: 20160526
  Serious: Yes (Hospitalization)
  Sender: FDA-Public Use
  Company Number: PHHO2016IT004184

PATIENT
  Sex: Male
  Weight: 95 kg

DRUGS (1)
  1. AIN457 [Suspect]
     Active Substance: SECUKINUMAB
     Indication: PSORIASIS
     Dosage: 300 MG (150 MGX2)
     Route: 058
     Dates: start: 20160119, end: 20160216

REACTIONS (1)
  - Rectal abscess [Recovering/Resolving]
